FAERS Safety Report 6272588-X (Version None)
Quarter: 2009Q3

REPORT INFORMATION
  Report Type: 
  Country: None (occurrence: None)
  Receive Date: 20090713
  Receipt Date: 20090216
  Transmission Date: 20100115
  Serious: Yes (Other)
  Sender: FDA-Public Use
  Company Number: 614598

PATIENT
  Age: 72 Year
  Sex: Female
  Weight: 66.2 kg

DRUGS (2)
  1. BONIVA [Suspect]
     Indication: OSTEOPENIA
     Dosage: 150 MG  1 PER MONTH  ORAL
     Route: 048
     Dates: start: 20090131, end: 20090131
  2. TOPROL-XL [Concomitant]

REACTIONS (4)
  - BONE PAIN [None]
  - MYALGIA [None]
  - NAUSEA [None]
  - RASH [None]
